FAERS Safety Report 7558444-5 (Version None)
Quarter: 2011Q2

REPORT INFORMATION
  Report Type: 
  Country: None (occurrence: None)
  Receive Date: 20110620
  Receipt Date: 20110608
  Transmission Date: 20111010
  Serious: Yes (Hospitalization)
  Sender: FDA-Public Use
  Company Number: US-ASTRAZENECA-2011SE35033

PATIENT
  Age: 49 Year
  Sex: Male
  Weight: 204.1 kg

DRUGS (1)
  1. SEROQUEL XR [Suspect]
     Indication: SLEEP DISORDER
     Route: 048
     Dates: start: 20090101

REACTIONS (3)
  - OFF LABEL USE [None]
  - DIALYSIS [None]
  - URINARY TRACT INFECTION [None]
